FAERS Safety Report 9325139 (Version 1)
Quarter: 2013Q2

REPORT INFORMATION
  Report Type: Spontaneous
  Country: US (occurrence: US)
  Receive Date: 20130603
  Receipt Date: 20130603
  Transmission Date: 20140414
  Serious: Yes (Hospitalization)
  Sender: FDA-Public Use
  Company Number: US-009507513-1305USA016905

PATIENT
  Sex: Female

DRUGS (3)
  1. ZOCOR [Suspect]
     Indication: CARDIOVASCULAR EVENT PROPHYLAXIS
     Dosage: 80 MG ONCE DAILY
     Route: 048
     Dates: end: 20130426
  2. CYMBALTA [Concomitant]
  3. LYRICA [Concomitant]

REACTIONS (3)
  - Sciatica [Not Recovered/Not Resolved]
  - Off label use [Unknown]
  - Drug interaction [Unknown]
